FAERS Safety Report 4392961-4 (Version None)
Quarter: 2004Q3

REPORT INFORMATION
  Report Type: 
  Country: None (occurrence: None)
  Receive Date: 20040702
  Receipt Date: 20040621
  Transmission Date: 20050211
  Serious: Yes (Hospitalization)
  Sender: FDA-Public Use
  Company Number: 2004035538

PATIENT
  Age: 60 Year
  Sex: Female

DRUGS (3)
  1. LIPITOR [Suspect]
     Indication: DYSLIPIDAEMIA
     Dosage: 10 MG (10 MG, 1 IN 1 D), ORAL
     Route: 048
     Dates: start: 20030501
  2. ENALAPRIL MALEATE [Concomitant]
  3. ATENOLOL [Concomitant]

REACTIONS (3)
  - ARRHYTHMIA [None]
  - CONDITION AGGRAVATED [None]
  - TREATMENT NONCOMPLIANCE [None]
